FAERS Safety Report 16976315 (Version 1)
Quarter: 2019Q4

REPORT INFORMATION
  Report Type: Spontaneous
  Country: AU (occurrence: AU)
  Receive Date: 20191030
  Receipt Date: 20191030
  Transmission Date: 20200122
  Serious: Yes (Hospitalization, Disabling)
  Sender: FDA-Public Use
  Company Number: AU-DSJP-DSU-2019-142597

PATIENT

DRUGS (1)
  1. OLMESARTAN MEDOXOMIL. [Suspect]
     Active Substance: OLMESARTAN MEDOXOMIL

REACTIONS (4)
  - Surgery [Unknown]
  - Weight decreased [Unknown]
  - Gait inability [Unknown]
  - Nausea [Unknown]
